FAERS Safety Report 9448742 (Version 1)
Quarter: 2013Q3

REPORT INFORMATION
  Report Type: Spontaneous
  Country: DE (occurrence: DE)
  Receive Date: 20130808
  Receipt Date: 20130808
  Transmission Date: 20140515
  Serious: Yes (Other)
  Sender: FDA-Public Use
  Company Number: DE-ACTAVIS-2013-13443

PATIENT
  Age: 33 Year
  Sex: Male

DRUGS (5)
  1. FLUDARABINE [Suspect]
     Indication: ACUTE MEGAKARYOCYTIC LEUKAEMIA
     Dosage: 30 MG/M2, ON DAYS 1-4
     Route: 065
  2. CYTARABINE [Suspect]
     Indication: ACUTE MEGAKARYOCYTIC LEUKAEMIA
     Dosage: 100 MG/M2, 24H/DAY
     Route: 065
  3. CYTARABINE [Suspect]
     Dosage: 2000 MG/M2, DAYS 1-4
     Route: 065
  4. DAUNORUBICIN [Suspect]
     Indication: ACUTE MEGAKARYOCYTIC LEUKAEMIA
     Dosage: 60 MG/M2, DAYS 1,3,5
     Route: 065
  5. IDARUBICIN [Suspect]
     Indication: ACUTE MEGAKARYOCYTIC LEUKAEMIA
     Dosage: 10 MG/M2, DAYS 1 AND 3
     Route: 065

REACTIONS (2)
  - Aplasia [Recovered/Resolved]
  - Pyrexia [Recovered/Resolved]
